FAERS Safety Report 5490737-8 (Version None)
Quarter: 2007Q4

REPORT INFORMATION
  Report Type: 
  Country: None (occurrence: None)
  Receive Date: 20071019
  Receipt Date: 20071008
  Transmission Date: 20080405
  Serious: Yes (Hospitalization)
  Sender: FDA-Public Use
  Company Number: B0491255A

PATIENT
  Age: 54 Year
  Sex: Female

DRUGS (1)
  1. CEFUROXIME AXETIL [Suspect]
     Indication: PNEUMONIA
     Dosage: 1G PER DAY
     Route: 048

REACTIONS (11)
  - ARTHRALGIA [None]
  - CONJUNCTIVAL HAEMORRHAGE [None]
  - CONJUNCTIVAL OEDEMA [None]
  - EYELID OEDEMA [None]
  - LUPUS-LIKE SYNDROME [None]
  - MALAISE [None]
  - MYALGIA [None]
  - PRURITUS [None]
  - RASH [None]
  - RASH MACULAR [None]
  - RED BLOOD CELL SEDIMENTATION RATE ABNORMAL [None]
